FAERS Safety Report 25453919 (Version 8)
Quarter: 2025Q3

REPORT INFORMATION
  Report Type: Spontaneous
  Country: EU (occurrence: EU)
  Receive Date: 20250619
  Receipt Date: 20250815
  Transmission Date: 20251021
  Serious: Yes (Death, Other)
  Sender: AUROBINDO
  Company Number: EU-ROCHE-10000280447

PATIENT
  Age: 16 Year
  Sex: Female
  Weight: 46 kg

DRUGS (52)
  1. HYDROCORTISONE [Suspect]
     Active Substance: HYDROCORTISONE
     Indication: B-cell lymphoma
     Dosage: 10 MILLIGRAM, ONCE A DAY (1 TOTAL)
     Route: 037
     Dates: start: 20250428
  2. HYDROCORTISONE [Suspect]
     Active Substance: HYDROCORTISONE
     Route: 037
     Dates: start: 20250428
  3. CARBOPLATIN [Suspect]
     Active Substance: CARBOPLATIN
     Indication: B-cell lymphoma
     Dosage: 940 MILLIGRAM, ONCE A DAY
     Route: 042
     Dates: start: 20250502
  4. CYTARABINE [Suspect]
     Active Substance: CYTARABINE
     Indication: B-cell lymphoma
     Dosage: 30 MILLIGRAM, ONCE A DAY
     Route: 037
     Dates: start: 20250428
  5. CYTARABINE [Suspect]
     Active Substance: CYTARABINE
     Route: 037
     Dates: start: 20250428
  6. METHOTREXATE [Suspect]
     Active Substance: METHOTREXATE
     Indication: B-cell lymphoma
     Dosage: 15 MILLIGRAM, ONCE A DAY
     Route: 037
     Dates: start: 20250428
  7. METHOTREXATE [Suspect]
     Active Substance: METHOTREXATE
     Route: 037
     Dates: start: 20250428
  8. OBINUTUZUMAB [Suspect]
     Active Substance: OBINUTUZUMAB
     Indication: B-cell lymphoma
     Dosage: 100 MILLIGRAM (START DATE OF MOST RECENT DOSE OF STUDY DRUG PRIOR TO AE: 01-MAY-2025, 900MG)
     Route: 042
     Dates: start: 20250430
  9. OBINUTUZUMAB [Suspect]
     Active Substance: OBINUTUZUMAB
     Route: 042
     Dates: start: 20250420
  10. ETOPOSIDE [Suspect]
     Active Substance: ETOPOSIDE
     Indication: B-cell lymphoma
     Dosage: 148 MILLIGRAM, ONCE A DAY
     Route: 042
     Dates: start: 20250502
  11. ETOPOSIDE [Suspect]
     Active Substance: ETOPOSIDE
     Route: 042
     Dates: start: 20250502
  12. IFOSFAMIDE [Suspect]
     Active Substance: IFOSFAMIDE
     Indication: B-cell lymphoma
     Route: 042
     Dates: start: 20250502
  13. MESNA [Suspect]
     Active Substance: MESNA
     Indication: B-cell lymphoma
     Dosage: 900 MILLIGRAM, ONCE A DAY
     Route: 042
     Dates: start: 20250502
  14. MESNA [Suspect]
     Active Substance: MESNA
     Route: 042
     Dates: start: 20250502
  15. GRANULOCYTE COLONY-STIMULATING FACTOR NOS [Suspect]
     Active Substance: GRANULOCYTE COLONY-STIMULATING FACTOR NOS
     Indication: B-cell lymphoma
     Route: 058
     Dates: start: 20250505
  16. LENOGRASTIM [Suspect]
     Active Substance: LENOGRASTIM
     Indication: B-cell lymphoma
     Route: 042
     Dates: start: 20250507
  17. LENOGRASTIM [Suspect]
     Active Substance: LENOGRASTIM
     Route: 058
     Dates: start: 20250505
  18. LENOGRASTIM [Suspect]
     Active Substance: LENOGRASTIM
     Indication: B-cell lymphoma
     Route: 042
     Dates: start: 20250507
  19. GLOFITAMAB [Suspect]
     Active Substance: GLOFITAMAB
     Indication: B-cell lymphoma
     Dosage: 2.5 MILLIGRAM (MOST RECENT DOSE: 2.5MG ON 07-MAY-2025)
     Route: 042
     Dates: start: 20250507
  20. VASOPRESSIN [Concomitant]
     Active Substance: VASOPRESSIN
     Indication: Hypotension
     Route: 065
  21. AMPHOTERICIN B [Concomitant]
     Active Substance: AMPHOTERICIN B
     Indication: Prophylaxis
     Route: 048
     Dates: start: 20250422, end: 20250513
  22. Reducto [Concomitant]
     Indication: Hypokalaemia
     Dosage: 2 DOSAGE FORM, ONCE A DAY
     Route: 048
     Dates: start: 20250506, end: 20250506
  23. CLEMASTINE [Concomitant]
     Active Substance: CLEMASTINE
     Indication: Prophylaxis
     Route: 042
     Dates: start: 20250430, end: 20250514
  24. DIMENHYDRINATE [Concomitant]
     Active Substance: DIMENHYDRINATE
     Indication: Nausea
     Route: 042
     Dates: start: 20250503, end: 20250503
  25. DIMENHYDRINATE [Concomitant]
     Active Substance: DIMENHYDRINATE
     Route: 042
     Dates: start: 20250503, end: 20250505
  26. Kalinor [Concomitant]
     Indication: Hypokalaemia
     Dosage: 3 DOSAGE FORM, ONCE A DAY
     Route: 048
     Dates: start: 20250502, end: 20250502
  27. LEVOMEPROMAZINE [Concomitant]
     Active Substance: LEVOMEPROMAZINE
     Indication: Nausea
     Dosage: 20 MILLIGRAM, ONCE A DAY
     Route: 048
     Dates: start: 20250506, end: 20250506
  28. POLYETHYLENE GLYCOLS [Concomitant]
     Active Substance: POLYETHYLENE GLYCOLS
     Indication: Prophylaxis
     Dosage: UNK, ONCE A DAY
     Route: 048
     Dates: start: 20250506, end: 20250506
  29. METAMIZOLE [Concomitant]
     Active Substance: METAMIZOLE
     Indication: Product used for unknown indication
     Dosage: 700 MILLIGRAM, TWO TIMES A DAY
     Route: 042
     Dates: start: 20250428, end: 20250428
  30. METAMIZOLE [Concomitant]
     Active Substance: METAMIZOLE
     Dosage: 700 MILLIGRAM, FOUR TIMES/DAY
     Route: 042
     Dates: start: 20250429, end: 20250429
  31. METAMIZOLE [Concomitant]
     Active Substance: METAMIZOLE
     Dosage: 700 MILLIGRAM, ONCE A DAY
     Route: 042
     Dates: start: 20250430, end: 20250430
  32. METAMIZOLE [Concomitant]
     Active Substance: METAMIZOLE
     Dosage: 600 MILLIGRAM, ONCE A DAY
     Route: 042
     Dates: start: 20250503, end: 20250503
  33. METAMIZOLE [Concomitant]
     Active Substance: METAMIZOLE
     Dosage: 700 MILLIGRAM, ONCE A DAY
     Route: 042
     Dates: start: 20250426, end: 20250426
  34. METAMIZOLE [Concomitant]
     Active Substance: METAMIZOLE
     Dosage: UNK UNK, ONCE A DAY
     Route: 042
     Dates: start: 20250503, end: 20250512
  35. METAMIZOLE [Concomitant]
     Active Substance: METAMIZOLE
     Dosage: 2.5 MILLIGRAM, ONCE A DAY
     Route: 042
     Dates: start: 20250508, end: 20250512
  36. METAMIZOLE [Concomitant]
     Active Substance: METAMIZOLE
     Indication: Pyrexia
     Dosage: 500 MILLIGRAM, ONCE A DAY
     Route: 048
     Dates: start: 20250430, end: 20250430
  37. METHYLPREDNISOLONE [Concomitant]
     Active Substance: METHYLPREDNISOLONE
     Indication: Prophylaxis
     Route: 042
     Dates: start: 20250430, end: 20250507
  38. MORPHINE SULFATE [Concomitant]
     Active Substance: MORPHINE SULFATE
     Indication: Prophylaxis
     Route: 042
     Dates: start: 20250507, end: 20250511
  39. ONDANSETRON [Concomitant]
     Active Substance: ONDANSETRON
     Indication: Nausea
     Dosage: 7 MILLIGRAM, ONCE A DAY
     Route: 042
     Dates: start: 20250428, end: 20250428
  40. ONDANSETRON [Concomitant]
     Active Substance: ONDANSETRON
     Dosage: 8 MILLIGRAM, ONCE A DAY
     Route: 042
     Dates: start: 20250430, end: 20250430
  41. ONDANSETRON [Concomitant]
     Active Substance: ONDANSETRON
     Dosage: 8 MILLIGRAM, TWO TIMES A DAY
     Route: 042
     Dates: start: 20250501, end: 20250501
  42. ONDANSETRON [Concomitant]
     Active Substance: ONDANSETRON
     Dosage: 7 MILLIGRAM, TWO TIMES A DAY
     Route: 042
     Dates: start: 20250504, end: 20250504
  43. ONDANSETRON [Concomitant]
     Active Substance: ONDANSETRON
     Dosage: 7 MILLIGRAM, TWO TIMES A DAY
     Route: 042
     Dates: start: 20250505, end: 20250506
  44. ONDANSETRON [Concomitant]
     Active Substance: ONDANSETRON
     Dosage: 8 MILLIGRAM, TWO TIMES A DAY
     Route: 042
     Dates: start: 20250501, end: 20250504
  45. PANTOPRAZOLE [Concomitant]
     Active Substance: PANTOPRAZOLE
     Indication: Prophylaxis
     Dosage: 20 MILLIGRAM, ONCE A DAY
     Route: 048
     Dates: start: 20250430, end: 20250506
  46. ACETAMINOPHEN [Concomitant]
     Active Substance: ACETAMINOPHEN
     Indication: Prophylaxis
     Route: 042
     Dates: start: 20250430, end: 20250508
  47. ACETAMINOPHEN [Concomitant]
     Active Substance: ACETAMINOPHEN
     Indication: Pyrexia
     Dosage: 700 MILLIGRAM, AS NECESSARY
     Route: 042
     Dates: start: 20250501, end: 20250501
  48. PIPERACILLIN AND TAZOBACTAM [Concomitant]
     Active Substance: PIPERACILLIN SODIUM\TAZOBACTAM SODIUM
     Indication: Prophylaxis
     Dosage: 4 GRAM, TWO TIMES A DAY
     Route: 042
     Dates: start: 20250508, end: 20250508
  49. VALACYCLOVIR HYDROCHLORIDE [Concomitant]
     Active Substance: VALACYCLOVIR HYDROCHLORIDE
     Indication: Prophylaxis
     Dosage: 500 MILLIGRAM, TWO TIMES A DAY
     Route: 048
     Dates: start: 20250326, end: 20250430
  50. VANCOMYCIN [Concomitant]
     Active Substance: VANCOMYCIN
     Indication: Prophylaxis
     Dosage: 650 MILLIGRAM, ONCE A DAY
     Route: 042
     Dates: start: 20250508, end: 20250508
  51. VANCOMYCIN [Concomitant]
     Active Substance: VANCOMYCIN
     Dosage: 650 MILLIGRAM, ONCE A DAY
     Route: 042
     Dates: start: 20250509, end: 20250511
  52. GRANULOCYTE COLONY-STIMULATING FACTOR NOS [Concomitant]
     Active Substance: GRANULOCYTE COLONY-STIMULATING FACTOR NOS
     Indication: B-cell lymphoma
     Route: 058
     Dates: start: 20250505

REACTIONS (2)
  - Death [Fatal]
  - Cytokine release syndrome [Recovered/Resolved]

NARRATIVE: CASE EVENT DATE: 20250507
